FAERS Safety Report 6842207-X (Version None)
Quarter: 2010Q3

REPORT INFORMATION
  Report Type: 
  Country: None (occurrence: None)
  Receive Date: 20100709
  Receipt Date: 20100630
  Transmission Date: 20110219
  Serious: Yes (Hospitalization)
  Sender: FDA-Public Use
  Company Number: 2010SP036891

PATIENT
  Age: 76 Year
  Sex: Female

DRUGS (4)
  1. PEGINTERFERON ALFA-2B [Suspect]
     Indication: HEPATITIS C
  2. RIBAVIRIN [Suspect]
     Indication: HEPATITIS C
  3. ATENOLOL [Concomitant]
  4. LEVOTHYROXINE SODIUM [Concomitant]

REACTIONS (8)
  - ANTINUCLEAR ANTIBODY POSITIVE [None]
  - BLOOD IMMUNOGLOBULIN G INCREASED [None]
  - BLOOD IMMUNOGLOBULIN M INCREASED [None]
  - CHRONIC HEPATITIS [None]
  - HEPATIC CIRRHOSIS [None]
  - HEPATIC NECROSIS [None]
  - INTERNATIONAL NORMALISED RATIO INCREASED [None]
  - PORTAL HYPERTENSIVE GASTROPATHY [None]
